FAERS Safety Report 9970652 (Version 1)
Quarter: 2014Q1

REPORT INFORMATION
  Report Type: Report from Study
  Country: US (occurrence: US)
  Receive Date: 20140306
  Receipt Date: 20140306
  Transmission Date: 20141002
  Serious: No
  Sender: FDA-Public Use
  Company Number: US-ABBVIE-13P-163-1151684-00

PATIENT
  Age: 40 Year
  Sex: Female

DRUGS (9)
  1. HUMIRA [Suspect]
     Indication: CROHN^S DISEASE
     Dates: start: 20130909, end: 20130909
  2. HUMIRA [Suspect]
     Dates: start: 20130923, end: 20130923
  3. HUMIRA [Suspect]
  4. GABAPENTIN [Concomitant]
     Indication: FIBROMYALGIA
  5. ASACOL [Concomitant]
     Indication: CROHN^S DISEASE
     Dosage: 400 MG DAILY
  6. HYDROXYZINE [Concomitant]
     Indication: ANXIETY
     Dosage: DAILY AT BEDTIME AND AS NEEDED
  7. BACLOFEN [Concomitant]
     Indication: INTERVERTEBRAL DISC PROTRUSION
     Dosage: DAILY
  8. DILANTIN [Concomitant]
     Indication: CONVULSION
     Dosage: 300 MG DAILY
  9. AMITRIPTYLINE [Concomitant]
     Indication: MIGRAINE

REACTIONS (1)
  - Injection site bruising [Not Recovered/Not Resolved]
